FAERS Safety Report 8306722-4 (Version None)
Quarter: 2012Q1

REPORT INFORMATION
  Report Type: 
  Country: None (occurrence: None)
  Receive Date: 20120327
  Receipt Date: 20090908
  Transmission Date: 20120608
  Serious: Yes (Hospitalization)
  Sender: FDA-Public Use
  Company Number: PHEH2009US10518

PATIENT
  Sex: Female

DRUGS (2)
  1. GLEEVEC [Suspect]
     Indication: CHRONIC MYELOID LEUKAEMIA
     Dosage: 400 MG, QD, ORAL ; 400 MG MWT, ORAL
     Route: 048
     Dates: start: 20090801
  2. GLEEVEC [Suspect]
     Indication: CHRONIC MYELOID LEUKAEMIA
     Dosage: 400 MG, QD, ORAL ; 400 MG MWT, ORAL
     Route: 048
     Dates: start: 20090406

REACTIONS (4)
  - DIARRHOEA [None]
  - RENAL FAILURE [None]
  - VOMITING [None]
  - NAUSEA [None]
